FAERS Safety Report 4827551-X (Version None)
Quarter: 2005Q4

REPORT INFORMATION
  Report Type: 
  Country: None (occurrence: None)
  Receive Date: 20051114
  Receipt Date: 20051102
  Transmission Date: 20060501
  Serious: Yes (Hospitalization)
  Sender: FDA-Public Use
  Company Number: GB-BRISTOL-MYERS SQUIBB COMPANY-13164611

PATIENT
  Age: 70 Year
  Sex: Male
  Weight: 92 kg

DRUGS (6)
  1. CISPLATIN [Suspect]
     Indication: RENAL CELL CARCINOMA STAGE UNSPECIFIED
     Route: 042
     Dates: start: 20050906, end: 20050906
  2. GEMCITABINE [Suspect]
     Indication: RENAL CELL CARCINOMA STAGE UNSPECIFIED
     Route: 042
     Dates: start: 20050906
  3. MS CONTIN [Concomitant]
     Indication: CANCER PAIN
     Route: 048
  4. LANSOPRAZOLE [Concomitant]
     Route: 048
  5. ORAMORPH SR [Concomitant]
     Route: 048
  6. DOMPERIDONE [Concomitant]
     Route: 048

REACTIONS (1)
  - NEUTROPENIC SEPSIS [None]
